FAERS Safety Report 6871781-2 (Version None)
Quarter: 2010Q3

REPORT INFORMATION
  Report Type: 
  Country: None (occurrence: None)
  Receive Date: 20100723
  Receipt Date: 20100716
  Transmission Date: 20110219
  Serious: Yes (Hospitalization)
  Sender: FDA-Public Use
  Company Number: A0871912A

PATIENT
  Age: 17 Year
  Sex: Female

DRUGS (2)
  1. DEXEDRINE [Suspect]
     Indication: ATTENTION DEFICIT/HYPERACTIVITY DISORDER
     Dosage: 40MGD PER DAY
     Route: 048
     Dates: start: 20090101, end: 20100716
  2. ADVIL LIQUI-GELS [Concomitant]

REACTIONS (2)
  - STUPOR [None]
  - UNRESPONSIVE TO STIMULI [None]
